FAERS Safety Report 7596952 (Version 6)
Quarter: 2012Q4

REPORT INFORMATION
  Report Type: 
  Country: US (occurrence: US)
  Receive Date: 20100920
  Receipt Date: 20121212
  Transmission Date: 20130627
  Serious: Yes (Hospitalization, Other)
  Sender: FDA-Public Use
  Company Number: US-ASTRAZENECA-2009SE14153

PATIENT
  Age: 65 Year
  Sex: Female
  Weight: 49.9 kg

DRUGS (21)
  1. SEROQUEL [Suspect]
     Indication: SLEEP DISORDER
     Route: 048
  2. SEROQUEL [Suspect]
     Indication: BIPOLAR DISORDER
     Route: 048
  3. SEROQUEL [Suspect]
     Indication: BIPOLAR I DISORDER
     Route: 048
  4. SEROQUEL [Suspect]
     Indication: SLEEP DISORDER
     Route: 048
  5. SEROQUEL [Suspect]
     Indication: BIPOLAR DISORDER
     Route: 048
  6. SEROQUEL [Suspect]
     Indication: BIPOLAR I DISORDER
     Route: 048
  7. SEROQUEL [Suspect]
     Indication: SLEEP DISORDER
     Route: 048
  8. SEROQUEL [Suspect]
     Indication: BIPOLAR DISORDER
     Route: 048
  9. SEROQUEL [Suspect]
     Indication: BIPOLAR I DISORDER
     Route: 048
  10. SEROQUEL [Suspect]
     Indication: SLEEP DISORDER
     Route: 048
  11. SEROQUEL [Suspect]
     Indication: BIPOLAR DISORDER
     Route: 048
  12. SEROQUEL [Suspect]
     Indication: BIPOLAR I DISORDER
     Route: 048
  13. SEROQUEL [Suspect]
     Indication: SLEEP DISORDER
     Route: 048
  14. SEROQUEL [Suspect]
     Indication: BIPOLAR DISORDER
     Route: 048
  15. SEROQUEL [Suspect]
     Indication: BIPOLAR I DISORDER
     Route: 048
  16. NEXIUM [Suspect]
     Route: 048
  17. LEXAPRO [Concomitant]
     Indication: ANTIDEPRESSANT THERAPY
  18. PARICADIN [Concomitant]
     Indication: APPETITE DISORDER
  19. POSTASSIUM [Concomitant]
     Indication: BLOOD POTASSIUM DECREASED
  20. LEDETRIACATAM [Concomitant]
     Indication: CONVULSION
  21. XANAX [Concomitant]
     Indication: ANXIETY

REACTIONS (19)
  - Hyperventilation [Unknown]
  - Convulsion [Unknown]
  - Upper limb fracture [Unknown]
  - Foot fracture [Unknown]
  - Anxiety [Unknown]
  - Speech disorder [Unknown]
  - Anxiety [Unknown]
  - Panic attack [Unknown]
  - Fear [Unknown]
  - Amnesia [Unknown]
  - Insomnia [Unknown]
  - Aggression [Unknown]
  - Headache [Unknown]
  - Migraine [Unknown]
  - Sinus disorder [Unknown]
  - Rhinorrhoea [Unknown]
  - Drug dose omission [Unknown]
  - Intentional drug misuse [Unknown]
  - Off label use [Unknown]
